FAERS Safety Report 7332952-4 (Version None)
Quarter: 2011Q1

REPORT INFORMATION
  Report Type: 
  Country: None (occurrence: None)
  Receive Date: 20110228
  Receipt Date: 20110228
  Transmission Date: 20110831
  Serious: No
  Sender: FDA-Public Use
  Company Number: None

PATIENT
  Age: 51 Year
  Sex: Female
  Weight: 76.2043 kg

DRUGS (1)
  1. PURE MAGNESIUM OIL [Suspect]
     Indication: MAGNESIUM DEFICIENCY
     Dosage: SPRAY
     Dates: start: 20110224, end: 20110225

REACTIONS (1)
  - THERMAL BURN [None]
